FAERS Safety Report 4697866-7 (Version None)
Quarter: 2005Q2

REPORT INFORMATION
  Report Type: 
  Country: None (occurrence: None)
  Receive Date: 20050623
  Receipt Date: 20050405
  Transmission Date: 20051028
  Serious: Yes (Disabling, Other)
  Sender: FDA-Public Use
  Company Number: 200513057GDDC

PATIENT
  Age: 36 Year
  Sex: Male

DRUGS (10)
  1. RIFADIN [Suspect]
     Indication: TUBERCULOSIS
     Route: 048
     Dates: start: 20011001, end: 20021001
  2. ISONIAZID [Suspect]
     Indication: TUBERCULOSIS
     Route: 048
     Dates: start: 20010901, end: 20031001
  3. TEBRAZID [Suspect]
     Indication: TUBERCULOSIS
     Route: 048
     Dates: start: 20010901, end: 20031001
  4. ETIBI [Suspect]
     Indication: TUBERCULOSIS
     Route: 048
     Dates: start: 20010901, end: 20011001
  5. CIPROFLOXACIN HCL [Concomitant]
     Dosage: DOSE: UNK
  6. VITAMIN B COMPLEX CAP [Concomitant]
     Indication: NERVOUS SYSTEM DISORDER
     Route: 048
     Dates: start: 20010101
  7. GINSENG [Concomitant]
     Indication: NERVOUS SYSTEM DISORDER
     Dosage: DOSE: UNK
     Route: 048
  8. ENERGIE FORCE [Concomitant]
     Dosage: DOSE: UNK
     Route: 048
  9. MEGA ENERMAX [Concomitant]
     Dosage: DOSE: 1 AMPULE
  10. HERBAL PREPARATION [Concomitant]

REACTIONS (7)
  - CEREBRAL ISCHAEMIA [None]
  - DISTURBANCE IN ATTENTION [None]
  - FATIGUE [None]
  - MENTAL DISORDER [None]
  - PARAESTHESIA [None]
  - SOMNOLENCE [None]
  - VASCULITIS CEREBRAL [None]
